FAERS Safety Report 4821273-7 (Version None)
Quarter: 2005Q4

REPORT INFORMATION
  Report Type: 
  Country: None (occurrence: None)
  Receive Date: 20051104
  Receipt Date: 20051104
  Transmission Date: 20060501
  Serious: Yes (Life-Threatening, Hospitalization)
  Sender: FDA-Public Use
  Company Number: None

PATIENT
  Sex: Male
  Weight: 43.5453 kg

DRUGS (4)
  1. CONCERTA [Suspect]
     Indication: ATTENTION DEFICIT/HYPERACTIVITY DISORDER
     Dosage: 18 MG DAILY
     Dates: start: 20040701, end: 20050201
  2. CONCERTA [Suspect]
     Dosage: 36 MG DAILY
     Dates: start: 20050201, end: 20050301
  3. STRATTERA [Concomitant]
  4. MIRTAZAPINE [Concomitant]

REACTIONS (5)
  - AGGRESSION [None]
  - BIPOLAR DISORDER [None]
  - DEPRESSION [None]
  - OPPOSITIONAL DEFIANT DISORDER [None]
  - SUICIDAL IDEATION [None]
